FAERS Safety Report 17288995 (Version 1)
Quarter: 2020Q1

REPORT INFORMATION
  Report Type: Spontaneous
  Country: US (occurrence: US)
  Receive Date: 20200120
  Receipt Date: 20200120
  Transmission Date: 20200409
  Serious: Yes (Other)
  Sender: FDA-Public Use
  Company Number: US-PFIZER INC-2020023344

PATIENT
  Age: 15 Year
  Sex: Male
  Weight: 48.98 kg

DRUGS (1)
  1. GENOTROPIN [Suspect]
     Active Substance: SOMATROPIN
     Indication: GROWTH HORMONE DEFICIENCY
     Dosage: 1.6 MG, 1X/DAY (DAILY AT BEDTIME)
     Route: 058
     Dates: start: 20180301

REACTIONS (1)
  - Seizure [Unknown]
